FAERS Safety Report 5004068-3 (Version None)
Quarter: 2006Q2

REPORT INFORMATION
  Report Type: 
  Country: None (occurrence: None)
  Receive Date: 20060517
  Receipt Date: 20060505
  Transmission Date: 20061013
  Serious: Yes (Life-Threatening, Hospitalization)
  Sender: FDA-Public Use
  Company Number: DE-SANOFI-SYNTHELABO-A04200600487

PATIENT
  Sex: Female
  Weight: 67 kg

DRUGS (4)
  1. PLAVIX [Suspect]
     Indication: ACUTE CORONARY SYNDROME
     Dosage: 300 MG
     Route: 048
     Dates: start: 20060405, end: 20060405
  2. PLAVIX [Suspect]
     Route: 048
     Dates: start: 20060406, end: 20060406
  3. ATORVASTATIN CALCIUM [Concomitant]
     Indication: ACUTE CORONARY SYNDROME
     Dosage: 80 MG
     Route: 048
     Dates: start: 20060406, end: 20060406
  4. EPTIFIBATID VS. PLACEBO [Concomitant]
     Indication: DRUG USE FOR UNKNOWN INDICATION
     Route: 041
     Dates: start: 20060406

REACTIONS (2)
  - FEBRILE NEUTROPENIA [None]
  - LEUKOPENIA [None]
